FAERS Safety Report 17227041 (Version 1)
Quarter: 2020Q1

REPORT INFORMATION
  Report Type: Spontaneous
  Country: IT (occurrence: IT)
  Receive Date: 20200103
  Receipt Date: 20200103
  Transmission Date: 20200409
  Serious: No
  Sender: FDA-Public Use
  Company Number: IT-ALKEM LABORATORIES LIMITED-IT-ALKEM-2019-09282

PATIENT
  Age: 82 Year
  Sex: Male

DRUGS (3)
  1. LIDOCAINE. [Suspect]
     Active Substance: LIDOCAINE
     Indication: ANAESTHESIA
     Dosage: 500 MILLIGRAM
     Route: 048
  2. LIDOCAINE. [Suspect]
     Active Substance: LIDOCAINE
     Dosage: 500 MILLIGRAM
  3. LIDOCAINE. [Suspect]
     Active Substance: LIDOCAINE
     Dosage: 500 MILLIGRAM

REACTIONS (1)
  - Local anaesthetic systemic toxicity [Unknown]
